FAERS Safety Report 11308902 (Version 4)
Quarter: 2015Q3

REPORT INFORMATION
  Report Type: Spontaneous
  Country: US (occurrence: US)
  Receive Date: 20150724
  Receipt Date: 20150820
  Transmission Date: 20151125
  Serious: Yes (Other)
  Sender: FDA-Public Use
  Company Number: ALCN2015US004549

PATIENT
  Age: 76 Year
  Sex: Male

DRUGS (3)
  1. BSS [Suspect]
     Active Substance: CALCIUM CHLORIDE\MAGNESIUM CHLORIDE\POTASSIUM CHLORIDE\SODIUM ACETATE\SODIUM CHLORIDE\SODIUM CITRATE
     Indication: CATARACT OPERATION
     Dosage: UNK
     Route: 047
     Dates: start: 20150624, end: 20150624
  2. BETADINE [Suspect]
     Active Substance: POVIDONE-IODINE
     Indication: CATARACT OPERATION
     Dosage: UNK
     Route: 047
     Dates: start: 20150624, end: 20150624
  3. TOBRAMYCIN. [Suspect]
     Active Substance: TOBRAMYCIN
     Indication: CATARACT OPERATION
     Route: 047

REACTIONS (3)
  - Vision blurred [Recovering/Resolving]
  - Endophthalmitis [Recovering/Resolving]
  - Photophobia [Recovering/Resolving]

NARRATIVE: CASE EVENT DATE: 20150704
